FAERS Safety Report 9311824 (Version 1)
Quarter: 2013Q2

REPORT INFORMATION
  Report Type: Report from Study
  Country: MX (occurrence: MX)
  Receive Date: 20130528
  Receipt Date: 20130528
  Transmission Date: 20140414
  Serious: Yes (Other)
  Sender: FDA-Public Use
  Company Number: PHHY2013MX052359

PATIENT
  Age: 80 Year
  Sex: Female

DRUGS (2)
  1. EXELON PATCH [Suspect]
     Dosage: 10 CM2/ 9.5 MG
     Route: 062
     Dates: start: 201109, end: 201211
  2. EXELON PATCH [Suspect]
     Dosage: 15 CM2/ 13.3 MG
     Route: 062
     Dates: start: 201211

REACTIONS (1)
  - Endometrial disorder [Recovered/Resolved]
